FAERS Safety Report 12770930 (Version 1)
Quarter: 2016Q3

REPORT INFORMATION
  Report Type: Spontaneous
  Country: US (occurrence: US)
  Receive Date: 20160919
  Receipt Date: 20160919
  Transmission Date: 20161109
  Serious: No
  Sender: FDA-Public Use
  Company Number: None

PATIENT
  Sex: Male
  Weight: 92.53 kg

DRUGS (1)
  1. AFINITOR [Suspect]
     Active Substance: EVEROLIMUS
     Indication: NEUROENDOCRINE TUMOUR
     Route: 048
     Dates: start: 20160621

REACTIONS (10)
  - Rash [None]
  - Haemoglobin decreased [None]
  - Blood glucose fluctuation [None]
  - Swelling face [None]
  - Facial pain [None]
  - Joint swelling [None]
  - Mouth ulceration [None]
  - Gingival swelling [None]
  - Urticaria [None]
  - Acne [None]
